FAERS Safety Report 22055067 (Version 1)
Quarter: 2023Q1

REPORT INFORMATION
  Report Type: Spontaneous
  Country: CA (occurrence: CA)
  Receive Date: 20230302
  Receipt Date: 20230302
  Transmission Date: 20230418
  Serious: Yes (Other)
  Sender: FDA-Public Use
  Company Number: CA-PFIZER INC-202300082850

PATIENT

DRUGS (5)
  1. BOSUTINIB [Suspect]
     Active Substance: BOSUTINIB
     Route: 065
  2. DASATINIB [Suspect]
     Active Substance: DASATINIB
     Route: 065
  3. IMATINIB MESYLATE [Suspect]
     Active Substance: IMATINIB MESYLATE
     Route: 065
  4. NILOTINIB [Suspect]
     Active Substance: NILOTINIB
     Route: 065
  5. PONATINIB [Suspect]
     Active Substance: PONATINIB
     Route: 065

REACTIONS (4)
  - Diarrhoea [Not Recovered/Not Resolved]
  - Pancreatitis [Not Recovered/Not Resolved]
  - Muscle spasms [Not Recovered/Not Resolved]
  - Neoplasm progression [Not Recovered/Not Resolved]
